FAERS Safety Report 8576733-2 (Version None)
Quarter: 2012Q3

REPORT INFORMATION
  Report Type: 
  Country: None (occurrence: None)
  Receive Date: 20120807
  Receipt Date: 20120723
  Transmission Date: 20120928
  Serious: No
  Sender: FDA-Public Use
  Company Number: US-ASTRAZENECA-2012SE52277

PATIENT
  Age: 46 Year
  Sex: Male

DRUGS (2)
  1. SEROQUEL [Concomitant]
  2. NEXIUM [Suspect]
     Route: 048

REACTIONS (2)
  - MALAISE [None]
  - DRUG DOSE OMISSION [None]
